FAERS Safety Report 10107680 (Version 1)
Quarter: 2014Q2

REPORT INFORMATION
  Report Type: Report from Study
  Country: US (occurrence: US)
  Receive Date: 20140424
  Receipt Date: 20140424
  Transmission Date: 20141212
  Serious: Yes (Other)
  Sender: FDA-Public Use
  Company Number: US-ABBVIE-14P-163-1226303-00

PATIENT
  Age: 23 Year
  Sex: Female

DRUGS (5)
  1. HUMIRA [Suspect]
     Indication: PSORIASIS
     Dosage: LOADING DOSE  ONE DOSE
     Route: 058
     Dates: start: 20140402, end: 20140402
  2. TRINESSA [Concomitant]
     Indication: PRODUCT USED FOR UNKNOWN INDICATION
  3. ROBINUL [Concomitant]
     Indication: PRODUCT USED FOR UNKNOWN INDICATION
  4. PRILOSEC [Concomitant]
     Indication: PRODUCT USED FOR UNKNOWN INDICATION
  5. STOOL SOFTENER [Concomitant]
     Indication: PRODUCT USED FOR UNKNOWN INDICATION

REACTIONS (4)
  - Angioedema [Recovered/Resolved]
  - Lip swelling [Recovered/Resolved]
  - Swollen tongue [Recovered/Resolved]
  - Rubber sensitivity [Not Recovered/Not Resolved]
